FAERS Safety Report 4835179-0 (Version None)
Quarter: 2005Q4

REPORT INFORMATION
  Report Type: 
  Country: None (occurrence: None)
  Receive Date: 20051114
  Receipt Date: 20051021
  Transmission Date: 20060501
  Serious: Yes (Life-Threatening)
  Sender: FDA-Public Use
  Company Number: 2005BH002776

PATIENT
  Sex: Female

DRUGS (1)
  1. POTASSIUM CHLORIDE [Suspect]

REACTIONS (5)
  - CARDIAC ARREST [None]
  - CARDIOPULMONARY FAILURE [None]
  - HYPERKALAEMIA [None]
  - HYPOXIA [None]
  - NERVOUS SYSTEM DISORDER [None]
